FAERS Safety Report 7472833-9 (Version None)
Quarter: 2011Q1

REPORT INFORMATION
  Report Type: 
  Country: None (occurrence: None)
  Receive Date: 20110302
  Receipt Date: 20100826
  Transmission Date: 20110831
  Serious: Yes (Hospitalization, Other)
  Sender: FDA-Public Use
  Company Number: 163-21880-10050816

PATIENT
  Age: 83 Year
  Sex: Female

DRUGS (2)
  1. REVLIMID [Suspect]
     Indication: MULTIPLE MYELOMA
     Dosage: DAYS 1-21, PO
     Route: 048
     Dates: start: 20100408
  2. REVLIMID [Suspect]

REACTIONS (2)
  - HAEMOGLOBIN DECREASED [None]
  - STOMATITIS [None]
